FAERS Safety Report 12884742 (Version 2)
Quarter: 2016Q4

REPORT INFORMATION
  Report Type: Spontaneous
  Country: US (occurrence: US)
  Receive Date: 20161026
  Receipt Date: 20161028
  Transmission Date: 20170207
  Serious: Yes (Other)
  Sender: FDA-Public Use
  Company Number: US-PFIZER INC-2016494449

PATIENT
  Age: 43 Year
  Sex: Female
  Weight: 90.72 kg

DRUGS (6)
  1. AMITRIPTYLINE [Concomitant]
     Active Substance: AMITRIPTYLINE
     Indication: INSOMNIA
     Dosage: 40 MG, 1X/DAY
     Route: 048
     Dates: start: 2014
  2. VENLAFAXINE HCL [Suspect]
     Active Substance: VENLAFAXINE HYDROCHLORIDE
     Indication: BIPOLAR DISORDER
     Dosage: 150 MG, 1X/DAY
     Route: 048
     Dates: start: 2014
  3. AMBIEN [Concomitant]
     Active Substance: ZOLPIDEM TARTRATE
     Indication: INSOMNIA
     Dosage: 10 MG, 1X/DAY
     Dates: start: 2014
  4. REMERON [Concomitant]
     Active Substance: MIRTAZAPINE
     Indication: INSOMNIA
     Dosage: 20 MG, 1X/DAY
     Route: 048
     Dates: start: 2014
  5. EFFEXOR XR [Suspect]
     Active Substance: VENLAFAXINE HYDROCHLORIDE
     Indication: BIPOLAR DISORDER
     Dosage: UNK
  6. LAMICTAL [Concomitant]
     Active Substance: LAMOTRIGINE
     Indication: BIPOLAR DISORDER
     Dosage: 600 MG, 1X/DAY
     Route: 048
     Dates: start: 2014

REACTIONS (2)
  - Anaemia [Recovering/Resolving]
  - Intentional self-injury [Unknown]

NARRATIVE: CASE EVENT DATE: 2016
